FAERS Safety Report 16767555 (Version 1)
Quarter: 2019Q3

REPORT INFORMATION
  Report Type: Spontaneous
  Country: AT (occurrence: AT)
  Receive Date: 20190903
  Receipt Date: 20190903
  Transmission Date: 20191005
  Serious: Yes (Hospitalization)
  Sender: FDA-Public Use
  Company Number: PHHY2019AT200330

PATIENT
  Age: 61 Year
  Sex: Female

DRUGS (1)
  1. OSPAMOX [Suspect]
     Active Substance: AMOXICILLIN
     Indication: PHARYNGITIS
     Dosage: 1 DF, UNK
     Route: 065
     Dates: start: 20190503, end: 20190503

REACTIONS (6)
  - Type I hypersensitivity [Recovered/Resolved]
  - Lip swelling [Recovered/Resolved]
  - Fall [Recovered/Resolved]
  - Skin test positive [Unknown]
  - Flushing [Recovered/Resolved]
  - Loss of consciousness [Recovered/Resolved]

NARRATIVE: CASE EVENT DATE: 20190503
